FAERS Safety Report 8340918-0 (Version None)
Quarter: 2012Q2

REPORT INFORMATION
  Report Type: 
  Country: None (occurrence: None)
  Receive Date: 20120507
  Receipt Date: 20120429
  Transmission Date: 20120825
  Serious: Yes (Other)
  Sender: FDA-Public Use
  Company Number: PHFR2012GB001904

PATIENT
  Sex: Male

DRUGS (1)
  1. CLOZARIL [Suspect]
     Indication: SCHIZOPHRENIA
     Dosage: 100 MG, (25 MG AND 75 MG)
     Route: 048
     Dates: start: 20120316

REACTIONS (10)
  - SINUS TACHYCARDIA [None]
  - NEUTROPHIL COUNT DECREASED [None]
  - EOSINOPHIL COUNT DECREASED [None]
  - C-REACTIVE PROTEIN INCREASED [None]
  - BODY TEMPERATURE INCREASED [None]
  - ORTHOSTATIC HYPOTENSION [None]
  - MYOCARDITIS [None]
  - TACHYCARDIA [None]
  - WHITE BLOOD CELL COUNT DECREASED [None]
  - CHILLS [None]
